FAERS Safety Report 9695706 (Version 1)
Quarter: 2013Q4

REPORT INFORMATION
  Report Type: Spontaneous
  Country: NL (occurrence: NL)
  Receive Date: 20131119
  Receipt Date: 20131119
  Transmission Date: 20140711
  Serious: Yes (Other)
  Sender: FDA-Public Use
  Company Number: NL-ASTRAZENECA-2013SE83045

PATIENT
  Age: 18485 Day
  Sex: Female
  Weight: 67 kg

DRUGS (2)
  1. LISINOPRIL [Suspect]
     Indication: CARDIAC FAILURE
     Route: 048
     Dates: start: 20131010, end: 20131022
  2. CETIRIZINE [Concomitant]
     Route: 001
     Dates: start: 2012

REACTIONS (1)
  - Suicidal ideation [Recovering/Resolving]
